FAERS Safety Report 20430535 (Version 1)
Quarter: 2022Q1

REPORT INFORMATION
  Report Type: Report from Study
  Country: FR (occurrence: FR)
  Receive Date: 20220204
  Receipt Date: 20220204
  Transmission Date: 20220423
  Serious: Yes (Disabling)
  Sender: FDA-Public Use
  Company Number: FR-SERVIER-S20010422

PATIENT

DRUGS (4)
  1. ONCASPAR [Suspect]
     Active Substance: PEGASPARGASE
     Indication: Acute lymphocytic leukaemia
     Dosage: 750 IU, QD
     Route: 042
     Dates: start: 20200323, end: 20200511
  2. TN UNSPECIFIED [Concomitant]
     Indication: Acute lymphocytic leukaemia
     Dosage: 10 MG, (D9, D23, D37, D51)
     Route: 037
     Dates: start: 20200708, end: 20200819
  3. TN UNSPECIFIED [Concomitant]
     Dosage: 3200 MG, (D8, D22, D36, D50)
     Route: 042
     Dates: start: 20200707, end: 20200818
  4. TN UNSPECIFIED [Concomitant]
     Indication: Acute lymphocytic leukaemia
     Dosage: 15 MG (D1 TO D56)
     Route: 048
     Dates: start: 20200630, end: 20200824

REACTIONS (1)
  - Tibia fracture [Recovering/Resolving]

NARRATIVE: CASE EVENT DATE: 20200830
